FAERS Safety Report 19482594 (Version 1)
Quarter: 2021Q3

REPORT INFORMATION
  Report Type: Spontaneous
  Country: ES (occurrence: ES)
  Receive Date: 20210701
  Receipt Date: 20210701
  Transmission Date: 20211014
  Serious: Yes (Life-Threatening, Hospitalization)
  Sender: FDA-Public Use
  Company Number: ES-TEVA-2021-ES-1926324

PATIENT
  Age: 43 Year
  Sex: Male
  Weight: 89 kg

DRUGS (1)
  1. RISPERIDONA (7201A) [Suspect]
     Active Substance: RISPERIDONE
     Route: 065

REACTIONS (1)
  - Fear [Unknown]
